FAERS Safety Report 12902601 (Version 1)
Quarter: 2016Q4

REPORT INFORMATION
  Report Type: Spontaneous
  Country: SE (occurrence: SE)
  Receive Date: 20161102
  Receipt Date: 20161102
  Transmission Date: 20170207
  Serious: Yes (Other)
  Sender: FDA-Public Use
  Company Number: SE-IMPAX LABORATORIES, INC-2016-IPXL-01463

PATIENT
  Age: 32 Year
  Sex: Female

DRUGS (3)
  1. MORPHINE SULFATE EXTENDED-RELEASE [Suspect]
     Active Substance: MORPHINE SULFATE
     Indication: SPINAL ANAESTHESIA
     Dosage: 0.4 MG/ML,100 MCG; UNK
     Route: 037
  2. FENTANYL. [Suspect]
     Active Substance: FENTANYL
     Indication: SPINAL ANAESTHESIA
     Dosage: 25 ?G, UNK
     Route: 037
  3. BUPIVACAINE W/GLUCOSE [Suspect]
     Active Substance: BUPIVACAINE\DEXTROSE
     Indication: SPINAL ANAESTHESIA
     Dosage: ADDED GLUCOSE, HEAVY 5 MG/ML; 13 MG; UNK
     Route: 037

REACTIONS (4)
  - Loss of consciousness [Recovered/Resolved]
  - Muscular weakness [Recovered/Resolved]
  - Respiratory failure [Recovered/Resolved]
  - Foetal exposure during pregnancy [Unknown]
